FAERS Safety Report 17851489 (Version 4)
Quarter: 2020Q2

REPORT INFORMATION
  Report Type: Report from Study
  Country: RU (occurrence: RU)
  Receive Date: 20200602
  Receipt Date: 20200615
  Transmission Date: 20200714
  Serious: Yes (Hospitalization)
  Sender: FDA-Public Use
  Company Number: NVSC2020RU150621

PATIENT
  Age: 11 Year
  Sex: Female
  Weight: 48 kg

DRUGS (4)
  1. TRAMETINIB [Suspect]
     Active Substance: TRAMETINIB
     Indication: GLIOMA
     Dosage: 1 MG, QD
     Route: 048
     Dates: start: 20190729
  2. TRAMETINIB [Suspect]
     Active Substance: TRAMETINIB
     Dosage: 1 MG, QD
     Route: 048
     Dates: start: 20200602
  3. DABRAFENIB [Suspect]
     Active Substance: DABRAFENIB
     Indication: GLIOMA
     Dosage: 125 MG, BID
     Route: 048
     Dates: start: 20190729
  4. DABRAFENIB [Suspect]
     Active Substance: DABRAFENIB
     Dosage: 125 MG, BID
     Route: 048
     Dates: start: 20200601

REACTIONS (1)
  - Uterine haemorrhage [Recovered/Resolved]

NARRATIVE: CASE EVENT DATE: 20200527
